FAERS Safety Report 9181590 (Version 1)
Quarter: 2013Q1

REPORT INFORMATION
  Report Type: Spontaneous
  Country: US (occurrence: US)
  Receive Date: 20130322
  Receipt Date: 20130322
  Transmission Date: 20140127
  Serious: Yes (Hospitalization)
  Sender: FDA-Public Use
  Company Number: US-BAYER-2013-033999

PATIENT
  Age: 36 Year
  Sex: Female

DRUGS (12)
  1. YAZ [Suspect]
  2. ATIVAN [Concomitant]
  3. ZITHROMAX [Concomitant]
  4. ETODOLAC [Concomitant]
  5. CEFZIL [Concomitant]
  6. TUSSIONEX [Concomitant]
  7. LEVAQUIN [Concomitant]
  8. MONISTAT [Concomitant]
  9. PROTONIX [Concomitant]
  10. LORAZEPAM [Concomitant]
  11. FERROUS SULFATE [Concomitant]
  12. ATENOLOL [Concomitant]

REACTIONS (2)
  - Pulmonary embolism [None]
  - Cholecystitis chronic [None]
